FAERS Safety Report 10004691 (Version 2)
Quarter: 2014Q3

REPORT INFORMATION
  Report Type: Spontaneous
  Country: AT (occurrence: AT)
  Receive Date: 20140312
  Receipt Date: 20140923
  Transmission Date: 20150326
  Serious: Yes (Hospitalization, Other)
  Sender: FDA-Public Use
  Company Number: AT-PFIZER INC-2014063047

PATIENT
  Age: 71 Year
  Sex: Female
  Weight: 67.7 kg

DRUGS (11)
  1. SEROQUEL [Suspect]
     Active Substance: QUETIAPINE FUMARATE
     Dosage: 225 MG, UNK
     Dates: start: 20140114, end: 20140128
  2. SEROQUEL [Suspect]
     Active Substance: QUETIAPINE FUMARATE
     Dosage: 125 MG, UNK
     Dates: start: 20140129, end: 20140131
  3. EFFORTIL [Concomitant]
     Active Substance: ETILEFRINE HYDROCHLORIDE
     Dosage: 22.5 ML, UNK
     Route: 048
     Dates: start: 20140123, end: 20140210
  4. SAROTEN [Suspect]
     Active Substance: AMITRIPTYLINE
     Dosage: 150 MG, UNK
     Dates: start: 20140123, end: 20140131
  5. INDERAL [Suspect]
     Active Substance: PROPRANOLOL HYDROCHLORIDE
     Dosage: 10 MG, UNK
     Dates: start: 20140113, end: 20140128
  6. DOMINAL FORTE [Suspect]
     Active Substance: PROTHIPENDYL HYDROCHLORIDE
     Dosage: 80 MG, UNK
     Dates: start: 20140107, end: 20140206
  7. SAROTEN [Suspect]
     Active Substance: AMITRIPTYLINE
     Dosage: 50 MG, UNK
     Dates: start: 20140117, end: 20140120
  8. SAROTEN [Suspect]
     Active Substance: AMITRIPTYLINE
     Dosage: 75 MG, UNK
     Dates: start: 20140121, end: 20140122
  9. TEMESTA [Concomitant]
     Active Substance: LORAZEPAM
     Dosage: 0.5 MG, UNK
     Dates: start: 20140127
  10. PANTOLOC [Suspect]
     Active Substance: PANTOPRAZOLE SODIUM
     Dosage: 40 MG, UNK
     Dates: start: 20140130
  11. SEROQUEL [Suspect]
     Active Substance: QUETIAPINE FUMARATE
     Dosage: 50 MG, UNK
     Dates: start: 20140201, end: 20140202

REACTIONS (1)
  - Subileus [Recovered/Resolved]

NARRATIVE: CASE EVENT DATE: 20140131
